FAERS Safety Report 11757293 (Version 1)
Quarter: 2015Q4

REPORT INFORMATION
  Report Type: Report from Study
  Country: US (occurrence: US)
  Receive Date: 20151120
  Receipt Date: 20151120
  Transmission Date: 20160304
  Serious: Yes (Hospitalization, Other)
  Sender: FDA-Public Use
  Company Number: US-ABBVIE-15K-163-1502020-00

PATIENT
  Age: 46 Year
  Sex: Female
  Weight: 95.34 kg

DRUGS (4)
  1. VITAMIN B [Concomitant]
     Active Substance: VITAMIN B
     Indication: VITAMIN SUPPLEMENTATION
  2. MELATONIN [Concomitant]
     Active Substance: MELATONIN
     Indication: INSOMNIA
  3. HUMIRA [Suspect]
     Active Substance: ADALIMUMAB
     Indication: COLITIS ULCERATIVE
     Route: 058
     Dates: start: 20141201, end: 201510
  4. MAGNESIUM CITRATE. [Concomitant]
     Active Substance: MAGNESIUM CITRATE
     Indication: MINERAL SUPPLEMENTATION

REACTIONS (13)
  - Mobility decreased [Recovering/Resolving]
  - Speech disorder [Not Recovered/Not Resolved]
  - Sinusitis [Recovered/Resolved]
  - Upper respiratory tract infection [Recovered/Resolved]
  - Ear pain [Not Recovered/Not Resolved]
  - Cerebrospinal fluid leakage [Not Recovered/Not Resolved]
  - Diarrhoea [Not Recovered/Not Resolved]
  - Nerve compression [Recovering/Resolving]
  - Synovial cyst [Recovered/Resolved]
  - Peroneal nerve palsy [Recovering/Resolving]
  - Hypoaesthesia [Recovering/Resolving]
  - Confusional state [Not Recovered/Not Resolved]
  - Meningitis [Not Recovered/Not Resolved]

NARRATIVE: CASE EVENT DATE: 2015
